FAERS Safety Report 23064642 (Version 1)
Quarter: 2023Q4

REPORT INFORMATION
  Report Type: Spontaneous
  Country: ES (occurrence: ES)
  Receive Date: 20231013
  Receipt Date: 20231013
  Transmission Date: 20240109
  Serious: Yes (Hospitalization)
  Sender: FDA-Public Use
  Company Number: ES-AEMPS-1388109

PATIENT
  Age: 21 Year
  Sex: Female

DRUGS (5)
  1. ACETAMINOPHEN [Suspect]
     Active Substance: ACETAMINOPHEN
     Indication: Pain
     Dosage: 3 GRAM, DAILY
     Route: 048
     Dates: start: 20221209, end: 20221216
  2. AMOXICILLIN [Suspect]
     Active Substance: AMOXICILLIN
     Indication: Pharyngitis
     Dosage: 3 GRAM, DAILY
     Route: 048
     Dates: start: 20221209, end: 20221216
  3. FAMCICLOVIR [Suspect]
     Active Substance: FAMCICLOVIR
     Indication: Herpes zoster
     Dosage: 750 MILLIGRAM, DAILY
     Route: 048
     Dates: start: 20221218, end: 20221225
  4. METAMIZOL SODIUM [Suspect]
     Active Substance: METAMIZOL SODIUM
     Indication: Pain
     Dosage: 1725 MILLIGRAM, DAILY
     Route: 048
     Dates: start: 20221218, end: 20221225
  5. IBUPROFEN [Suspect]
     Active Substance: IBUPROFEN
     Indication: Pain
     Dosage: 1.8 MILLIGRAM, DAILY
     Route: 048
     Dates: start: 20221218, end: 20221225

REACTIONS (1)
  - Renal tubular necrosis [Recovered/Resolved]

NARRATIVE: CASE EVENT DATE: 20230110
